FAERS Safety Report 4360086-X (Version None)
Quarter: 2004Q2

REPORT INFORMATION
  Report Type: 
  Country: None (occurrence: None)
  Receive Date: 20040519
  Receipt Date: 20040503
  Transmission Date: 20050107
  Serious: Yes (Hospitalization)
  Sender: FDA-Public Use
  Company Number: NL-JNJFOC-20040501550

PATIENT
  Sex: Male

DRUGS (1)
  1. DAKTARIN [Suspect]
     Dosage: PATIENT PRESCRIBED HALF A MEASURING SPOON 4 TIMES A DAY
     Route: 049

REACTIONS (3)
  - ASPHYXIA [None]
  - CHOKING [None]
  - OBSTRUCTIVE AIRWAYS DISORDER [None]
